FAERS Safety Report 6388484-3 (Version None)
Quarter: 2009Q4

REPORT INFORMATION
  Report Type: 
  Country: None (occurrence: None)
  Receive Date: 20091005
  Receipt Date: 20090929
  Transmission Date: 20100525
  Serious: Yes (Hospitalization)
  Sender: FDA-Public Use
  Company Number: A0810062A

PATIENT
  Age: 58 Year
  Sex: Female

DRUGS (2)
  1. AVANDIA [Suspect]
     Dosage: 4MG TWELVE TIMES PER DAY
     Dates: start: 20020101, end: 20060101
  2. AVANDAMET [Suspect]
     Dates: start: 20061213, end: 20070428

REACTIONS (1)
  - CEREBROVASCULAR ACCIDENT [None]
